FAERS Safety Report 11992903 (Version 1)
Quarter: 2016Q1

REPORT INFORMATION
  Report Type: Spontaneous
  Country: US (occurrence: US)
  Receive Date: 20160203
  Receipt Date: 20160203
  Transmission Date: 20160526
  Serious: Yes (Other)
  Sender: FDA-Public Use
  Company Number: US-UCBSA-2015019436

PATIENT
  Age: 47 Year
  Sex: Male
  Weight: 59 kg

DRUGS (2)
  1. DIVALPROEX SODIUM. [Suspect]
     Active Substance: DIVALPROEX SODIUM
     Indication: SEIZURE
     Dosage: 500 MG, 3 TABLETS IN THE MORNING AND 2 TABLETS AT NIGHT
     Route: 048
  2. KEPPRA [Suspect]
     Active Substance: LEVETIRACETAM
     Indication: SEIZURE
     Dosage: UNK

REACTIONS (4)
  - Platelet count decreased [Unknown]
  - Drug level increased [Recovered/Resolved]
  - Mood altered [Unknown]
  - Seizure [Unknown]

NARRATIVE: CASE EVENT DATE: 201412
